FAERS Safety Report 16569697 (Version 1)
Quarter: 2019Q3

REPORT INFORMATION
  Report Type: Spontaneous
  Country: AU (occurrence: AU)
  Receive Date: 20190715
  Receipt Date: 20190715
  Transmission Date: 20191004
  Serious: Yes (Other)
  Sender: FDA-Public Use
  Company Number: AU-BEH-2019103986

PATIENT
  Age: 70 Year
  Sex: Male
  Weight: 110 kg

DRUGS (6)
  1. PRIVIGEN [Suspect]
     Active Substance: HUMAN IMMUNOGLOBULIN G
     Indication: CHRONIC INFLAMMATORY DEMYELINATING POLYRADICULONEUROPATHY
     Route: 042
  2. OXYBUTIN [Concomitant]
     Active Substance: OXYBUTYNIN
     Route: 065
  3. NEXIUM 24HR [Concomitant]
     Active Substance: ESOMEPRAZOLE MAGNESIUM
     Dosage: 20 MILLIGRAM, DAILY
  4. CELEBREX [Concomitant]
     Active Substance: CELECOXIB
     Dosage: 100 MILLIGRAM, TWICE DAILY
     Route: 065
  5. FLIXOTIDE [Concomitant]
     Active Substance: FLUTICASONE PROPIONATE
     Dosage: 1-2 PER DAY
     Route: 065
  6. NEURONTIN [Concomitant]
     Active Substance: GABAPENTIN
     Route: 065

REACTIONS (3)
  - Rash erythematous [Recovered/Resolved]
  - Nausea [Unknown]
  - Rash [Unknown]

NARRATIVE: CASE EVENT DATE: 201902
